FAERS Safety Report 8249436-1 (Version None)
Quarter: 2012Q2

REPORT INFORMATION
  Report Type: 
  Country: None (occurrence: None)
  Receive Date: 20120402
  Receipt Date: 20120330
  Transmission Date: 20120825
  Serious: Yes (Other)
  Sender: FDA-Public Use
  Company Number: SG-BAYER-2012-031311

PATIENT
  Age: 59 Year
  Sex: Male

DRUGS (1)
  1. ACARBOSE [Suspect]

REACTIONS (2)
  - PRURITUS [None]
  - FLATULENCE [None]
